FAERS Safety Report 6738703-6 (Version None)
Quarter: 2010Q2

REPORT INFORMATION
  Report Type: 
  Country: None (occurrence: None)
  Receive Date: 20100524
  Receipt Date: 20100511
  Transmission Date: 20101027
  Serious: Yes (Hospitalization)
  Sender: FDA-Public Use
  Company Number: TR-SANOFI-AVENTIS-2010SA027274

PATIENT
  Age: 6 Month
  Sex: Male

DRUGS (2)
  1. PREDNICARBATE [Suspect]
     Indication: DERMATITIS DIAPER
     Route: 061
  2. CLOBETASOL PROPIONATE [Suspect]
     Indication: DERMATITIS DIAPER
     Route: 061

REACTIONS (2)
  - CUSHING'S SYNDROME [None]
  - OFF LABEL USE [None]
